FAERS Safety Report 10908188 (Version 2)
Quarter: 2015Q2

REPORT INFORMATION
  Report Type: Spontaneous
  Country: BR (occurrence: BR)
  Receive Date: 20150312
  Receipt Date: 20150514
  Transmission Date: 20150821
  Serious: Yes (Hospitalization)
  Sender: FDA-Public Use
  Company Number: BR-PFIZER INC-2015070128

PATIENT
  Sex: Male

DRUGS (3)
  1. CEBRALAT [Suspect]
     Active Substance: CILOSTAZOL
     Dosage: STRENGTH 100 MG
  2. LIPITOR [Suspect]
     Active Substance: ATORVASTATIN CALCIUM
     Dosage: 40 MG, 1X/DAY (AT NIGHT)
  3. CEBRALAT [Suspect]
     Active Substance: CILOSTAZOL
     Indication: BLOOD DISORDER
     Dosage: STRENGTH 50 MG

REACTIONS (5)
  - Nausea [Unknown]
  - Retching [Unknown]
  - Vomiting [Unknown]
  - Adrenal disorder [Unknown]
  - Malaise [Unknown]

NARRATIVE: CASE EVENT DATE: 201412
